FAERS Safety Report 19627064 (Version 2)
Quarter: 2021Q4

REPORT INFORMATION
  Report Type: Spontaneous
  Country: IE (occurrence: IE)
  Receive Date: 20210729
  Receipt Date: 20211022
  Transmission Date: 20220303
  Serious: Yes (Death, Hospitalization)
  Sender: FDA-Public Use
  Company Number: IE-MYLANLABS-2021M1046572

PATIENT
  Age: 69 Year
  Sex: Male

DRUGS (4)
  1. CLOZARIL [Suspect]
     Active Substance: CLOZAPINE
     Indication: Schizophrenia
     Dosage: 50 MILLIGRAM, MANE
     Route: 048
     Dates: start: 20150423
  2. CLOZARIL [Suspect]
     Active Substance: CLOZAPINE
     Dosage: 225 MILLIGRAM, NOCTE
     Route: 048
     Dates: start: 20150423
  3. TOPIRAMATE [Concomitant]
     Active Substance: TOPIRAMATE
     Dosage: 175 MILLIGRAM, QD
  4. BIPERIDEN [Concomitant]
     Active Substance: BIPERIDEN
     Dosage: 2 MILLIGRAM, BID

REACTIONS (1)
  - Cerebrovascular accident [Fatal]

NARRATIVE: CASE EVENT DATE: 20210722
